FAERS Safety Report 20363624 (Version 1)
Quarter: 2022Q1

REPORT INFORMATION
  Report Type: Spontaneous
  Country: US (occurrence: US)
  Receive Date: 20220121
  Receipt Date: 20220121
  Transmission Date: 20220423
  Serious: Yes (Other)
  Sender: FDA-Public Use
  Company Number: US-LUPIN PHARMACEUTICALS INC.-2022-00601

PATIENT
  Age: 64 Year
  Sex: Female

DRUGS (6)
  1. BUPROPION [Suspect]
     Active Substance: BUPROPION
     Indication: Major depression
     Dosage: UNK
     Route: 065
  2. VENLAFAXINE [Suspect]
     Active Substance: VENLAFAXINE HYDROCHLORIDE
     Indication: Major depression
     Dosage: UNK
     Route: 065
  3. CITALOPRAM [Suspect]
     Active Substance: CITALOPRAM HYDROBROMIDE
     Indication: Major depression
     Dosage: UNK
     Route: 065
  4. ESKETAMINE [Concomitant]
     Active Substance: ESKETAMINE
     Indication: Major depression
     Dosage: 56 MILLIGRAM, ON DAY 1
     Route: 045
  5. ESKETAMINE [Concomitant]
     Active Substance: ESKETAMINE
     Dosage: 84 MILLIGRAM, DOSE TITRATED TO 84 MG ON DAY 11
     Route: 045
  6. DULOXETINE [Concomitant]
     Active Substance: DULOXETINE
     Indication: Major depression
     Dosage: UNK
     Route: 048

REACTIONS (1)
  - Treatment failure [Unknown]
